FAERS Safety Report 25565591 (Version 1)
Quarter: 2025Q3

REPORT INFORMATION
  Report Type: Spontaneous
  Country: IL (occurrence: IL)
  Receive Date: 20250716
  Receipt Date: 20250716
  Transmission Date: 20251021
  Serious: Yes (Death, Other)
  Sender: TEVA
  Company Number: IL-TEVA-VS-3351928

PATIENT
  Age: 54 Year

DRUGS (4)
  1. CISPLATIN [Suspect]
     Active Substance: CISPLATIN
     Indication: Pulmonary resection
     Route: 065
  2. NAVELBINE [Suspect]
     Active Substance: VINORELBINE TARTRATE
     Indication: Pulmonary resection
     Route: 065
  3. ALIMTA [Suspect]
     Active Substance: PEMETREXED DISODIUM
     Indication: Pulmonary resection
     Route: 065
  4. KEYTRUDA [Suspect]
     Active Substance: PEMBROLIZUMAB
     Indication: Pulmonary resection
     Route: 065
     Dates: start: 202103, end: 202205

REACTIONS (2)
  - Lung adenocarcinoma [Fatal]
  - Metastases to central nervous system [Unknown]

NARRATIVE: CASE EVENT DATE: 20201101
